FAERS Safety Report 4677536-1 (Version None)
Quarter: 2005Q2

REPORT INFORMATION
  Report Type: 
  Country: None (occurrence: None)
  Receive Date: 20050526
  Receipt Date: 20050526
  Transmission Date: 20051028
  Serious: Yes (Other)
  Sender: FDA-Public Use
  Company Number: None

PATIENT
  Sex: Female
  Weight: 59 kg

DRUGS (1)
  1. THALIDOMIDE    100 MG CAPSULES   CELGENE [Suspect]
     Indication: HEREDITARY HAEMORRHAGIC TELANGIECTASIA
     Dosage: 400 MG   QD   ORAL
     Route: 048
     Dates: start: 20030715, end: 20041013

REACTIONS (2)
  - MUSCULAR WEAKNESS [None]
  - NEUROPATHY PERIPHERAL [None]
